FAERS Safety Report 16308360 (Version 2)
Quarter: 2019Q2

REPORT INFORMATION
  Report Type: Spontaneous
  Country: BR (occurrence: BR)
  Receive Date: 20190514
  Receipt Date: 20190604
  Transmission Date: 20190711
  Serious: Yes (Other)
  Sender: FDA-Public Use
  Company Number: BR-GLAXOSMITHKLINE-BR2019GSK075045

PATIENT
  Sex: Female
  Weight: 62 kg

DRUGS (1)
  1. NUCALA [Suspect]
     Active Substance: MEPOLIZUMAB
     Indication: ASTHMA
     Dosage: 100 MG, UNK
     Dates: start: 20190312

REACTIONS (4)
  - Influenza [Unknown]
  - Dyspnoea [Unknown]
  - Asthmatic crisis [Unknown]
  - Inappropriate schedule of product administration [Unknown]
